FAERS Safety Report 6129201-1 (Version None)
Quarter: 2009Q1

REPORT INFORMATION
  Report Type: 
  Country: None (occurrence: None)
  Receive Date: 20090324
  Receipt Date: 20090324
  Transmission Date: 20090719
  Serious: Yes (Hospitalization)
  Sender: FDA-Public Use
  Company Number: PHHO2002FR04968

PATIENT
  Sex: Female
  Weight: 84 kg

DRUGS (3)
  1. CGS 20267 T30748+ [Suspect]
     Indication: BREAST CANCER
     Dosage: 2.5 MG, QD
     Route: 048
     Dates: start: 20020305, end: 20020313
  2. AGREAL [Concomitant]
  3. ENDOTELON [Concomitant]

REACTIONS (4)
  - ENDOMETRIAL HYPERPLASIA [None]
  - METRORRHAGIA [None]
  - UTERINE DILATION AND CURETTAGE [None]
  - UTERINE POLYP [None]
